FAERS Safety Report 12771184 (Version 1)
Quarter: 2016Q3

REPORT INFORMATION
  Report Type: Spontaneous
  Country: US (occurrence: US)
  Receive Date: 20160921
  Receipt Date: 20160921
  Transmission Date: 20161109
  Serious: Yes (Disabling, Other)
  Sender: FDA-Public Use
  Company Number: None

PATIENT
  Age: 16 Year
  Sex: Female
  Weight: 45.9 kg

DRUGS (1)
  1. AMOX-CLAV 875 MG [Suspect]
     Active Substance: AMOXICILLIN\CLAVULANATE POTASSIUM
     Indication: PHARYNGITIS STREPTOCOCCAL
     Route: 048
     Dates: start: 20160728, end: 20160803

REACTIONS (6)
  - Skin mass [None]
  - Arthropathy [None]
  - Product quality issue [None]
  - Gait disturbance [None]
  - Contusion [None]
  - Educational problem [None]

NARRATIVE: CASE EVENT DATE: 20160801
